FAERS Safety Report 6292008-9 (Version None)
Quarter: 2009Q3

REPORT INFORMATION
  Report Type: 
  Country: None (occurrence: None)
  Receive Date: 20090729
  Receipt Date: 20090720
  Transmission Date: 20100115
  Serious: Yes (Hospitalization)
  Sender: FDA-Public Use
  Company Number: JPI-P-007977

PATIENT
  Age: 74 Year
  Sex: Female

DRUGS (43)
  1. XYREM [Suspect]
     Indication: FIBROMYALGIA
     Dosage: 9 GM (4.5 GM, 2 IN 1 D), ORAL
     Route: 048
     Dates: start: 20090707
  2. XYREM [Suspect]
     Indication: SLEEP DISORDER
     Dosage: 9 GM (4.5 GM, 2 IN 1 D), ORAL
     Route: 048
     Dates: start: 20090707
  3. PERPHENAZINE AND AMITRIPTYLINE HCL [Suspect]
     Indication: ANXIETY
     Dosage: 2 IN 1 D
  4. DICYCLOMINE [Concomitant]
  5. DOXYCYCLINE [Concomitant]
  6. HISTAMINE PHOSPHATE [Concomitant]
  7. PROPANTHELINE [Concomitant]
  8. NIACIN [Concomitant]
  9. HYOSCYAMINE [Concomitant]
  10. PAMINE FORTE [Concomitant]
  11. DICYCLOMINE HYDROCHLORIDE [Concomitant]
  12. ONDANSETRON HYDROCHLORIDE [Concomitant]
  13. AMPHETAMINE AND DEXTROAMPHETAMINE SALTS [Concomitant]
  14. LIDOCAINE / PRILOCAINE (OINTMENT) [Concomitant]
  15. HYDROXYZINE [Concomitant]
  16. KETOCONAZOLE [Concomitant]
  17. ATOMOXETINE HCL [Concomitant]
  18. CYCLOSPORINE [Concomitant]
  19. METRONIDAZOLE [Concomitant]
  20. ZOLPIDEM TARTRATE [Concomitant]
  21. ZONALON CREAM (CREAM) [Concomitant]
  22. ECONAZOLE NITRATE [Concomitant]
  23. FLUTICASONE PROPIONATE [Concomitant]
  24. NITROGLYCERIN [Concomitant]
  25. ACETAMINOPHEN AND HYDROCODONE BITARTRATE [Concomitant]
  26. POTASSIUM CHLORIDE [Concomitant]
  27. FAMCICLOVIR [Concomitant]
  28. FEXOFENADINE HYDROCHLORIDE [Concomitant]
  29. DIAZEPAM [Concomitant]
  30. EZETIMIBE [Concomitant]
  31. MECLIZINE HCL [Concomitant]
  32. PROPOXYPHENE HYDROCHLORIDE [Concomitant]
  33. PREDNISONE TAB [Concomitant]
  34. MUPIROCIN [Concomitant]
  35. LANSOPRAZOLE [Concomitant]
  36. IBANDRONATE SODIUM [Concomitant]
  37. DULOXETINE HYDROCHLORIDE [Concomitant]
  38. BUMETANIDE [Concomitant]
  39. INDAPAMIDE [Concomitant]
  40. LEVOTHYROXINE SODIUM [Concomitant]
  41. HYDROXYCHLOROQUINE SULFATE [Concomitant]
  42. PROBIOTIC [Concomitant]
  43. ONDANSETRON HYDROCHLORIDE [Concomitant]

REACTIONS (6)
  - AGITATION [None]
  - ASTHENIA [None]
  - DYSTONIA [None]
  - FALL [None]
  - HALLUCINATION [None]
  - HYPOXIA [None]
